FAERS Safety Report 6549776-8 (Version None)
Quarter: 2010Q1

REPORT INFORMATION
  Report Type: 
  Country: None (occurrence: None)
  Receive Date: 20100125
  Receipt Date: 20100113
  Transmission Date: 20100710
  Serious: Yes (Hospitalization, Other)
  Sender: FDA-Public Use
  Company Number: US-CELGENEUS-163-21880-10010828

PATIENT
  Sex: Male

DRUGS (3)
  1. REVLIMID [Suspect]
     Indication: MULTIPLE MYELOMA
     Route: 048
     Dates: start: 20091001
  2. REVLIMID [Suspect]
     Route: 048
     Dates: start: 20090901
  3. REVLIMID [Suspect]
     Route: 048
     Dates: start: 20090901

REACTIONS (4)
  - HEART RATE IRREGULAR [None]
  - HYPOXIA [None]
  - LOSS OF CONSCIOUSNESS [None]
  - SOMNOLENCE [None]
